FAERS Safety Report 7521313-0 (Version None)
Quarter: 2011Q2

REPORT INFORMATION
  Report Type: 
  Country: None (occurrence: None)
  Receive Date: 20110603
  Receipt Date: 20101201
  Transmission Date: 20111010
  Serious: No
  Sender: FDA-Public Use
  Company Number: US-BAYER-2010-001032

PATIENT
  Sex: Male

DRUGS (2)
  1. INTERFERON BETA-1B [Suspect]
     Indication: SECONDARY PROGRESSIVE MULTIPLE SCLEROSIS
     Dosage: UNK
     Dates: start: 19931215, end: 20020615
  2. INTERFERON BETA-1B [Suspect]
     Dosage: UNK
     Dates: start: 20100405, end: 20100630

REACTIONS (2)
  - NAUSEA [None]
  - INFLUENZA LIKE ILLNESS [None]
